FAERS Safety Report 6501367-0 (Version None)
Quarter: 2009Q4

REPORT INFORMATION
  Report Type: 
  Country: None (occurrence: None)
  Receive Date: 20091215
  Receipt Date: 20091215
  Transmission Date: 20100525
  Serious: Yes (Life-Threatening)
  Sender: FDA-Public Use
  Company Number: None

PATIENT
  Sex: Female
  Weight: 17.9 kg

DRUGS (7)
  1. CYCLOPHOSPHAMIDE [Suspect]
     Indication: ACUTE LYMPHOCYTIC LEUKAEMIA
     Dosage: 770MG ONCE IV DRIP
     Route: 041
     Dates: start: 20091103, end: 20091103
  2. CYTARABINE [Suspect]
     Indication: ACUTE LYMPHOCYTIC LEUKAEMIA
     Dosage: 480MG ONCE IV BOLUS
     Route: 040
     Dates: start: 20091113, end: 20091113
  3. DOXORUBICIN HCL [Concomitant]
  4. METHOTRXATE [Concomitant]
  5. THIOGUANINE [Concomitant]
  6. NCRISTINE [Concomitant]
  7. DEXAMETHASONE [Concomitant]

REACTIONS (6)
  - HYPOXIA [None]
  - NEUROTOXICITY [None]
  - PARTIAL SEIZURES [None]
  - POSTURE ABNORMAL [None]
  - STREPTOCOCCAL SEPSIS [None]
  - UNRESPONSIVE TO STIMULI [None]
